FAERS Safety Report 19073082 (Version 1)
Quarter: 2021Q1

REPORT INFORMATION
  Report Type: Spontaneous
  Country: BE (occurrence: BE)
  Receive Date: 20210330
  Receipt Date: 20210330
  Transmission Date: 20210420
  Serious: Yes (Death, Life-Threatening, Hospitalization)
  Sender: FDA-Public Use
  Company Number: NVSC2021BE068904

PATIENT
  Age: 45 Year
  Sex: Female
  Weight: 104.2 kg

DRUGS (11)
  1. MEDROL [Suspect]
     Active Substance: METHYLPREDNISOLONE
     Dosage: 96 MG, QD
     Route: 048
     Dates: start: 20210209, end: 20210209
  2. MEDROL [Suspect]
     Active Substance: METHYLPREDNISOLONE
     Dosage: 32 MG, QD
     Route: 048
     Dates: start: 20210211, end: 20210211
  3. ITACITINIB [Suspect]
     Active Substance: ITACITINIB
     Indication: CHRONIC GRAFT VERSUS HOST DISEASE
     Dosage: 200 MG, QD
     Route: 048
     Dates: start: 20210125
  4. METHYLPREDNISOLONE. [Suspect]
     Active Substance: METHYLPREDNISOLONE
     Indication: CHRONIC GRAFT VERSUS HOST DISEASE
     Dosage: 60 MG, QD
     Route: 042
     Dates: start: 20210224
  5. MEDROL [Suspect]
     Active Substance: METHYLPREDNISOLONE
     Indication: CHRONIC GRAFT VERSUS HOST DISEASE
     Dosage: 128 MG, QD (64 MILLIGRAM, BID)
     Route: 048
     Dates: start: 20210123, end: 20210131
  6. MEDROL [Suspect]
     Active Substance: METHYLPREDNISOLONE
     Dosage: 96 MG, QD
     Route: 048
     Dates: start: 20210212, end: 20210212
  7. MEDROL [Suspect]
     Active Substance: METHYLPREDNISOLONE
     Dosage: 72 MG, QD
     Route: 048
     Dates: start: 20210216, end: 20210218
  8. LINEZOLID. [Suspect]
     Active Substance: LINEZOLID
     Indication: PRODUCT USED FOR UNKNOWN INDICATION
     Dosage: UNK
     Route: 065
     Dates: start: 20210213
  9. MEDROL [Suspect]
     Active Substance: METHYLPREDNISOLONE
     Dosage: 64 MG, QD
     Route: 048
     Dates: start: 20210219, end: 20210223
  10. MEDROL [Suspect]
     Active Substance: METHYLPREDNISOLONE
     Dosage: 112 MG, QD
     Route: 048
     Dates: start: 20210201, end: 20210208
  11. MEDROL [Suspect]
     Active Substance: METHYLPREDNISOLONE
     Dosage: 80 MG, QD
     Route: 048
     Dates: start: 20210213, end: 20210215

REACTIONS (4)
  - Acute kidney injury [Fatal]
  - Lactic acidosis [Fatal]
  - Epilepsy [Fatal]
  - Sepsis [Fatal]

NARRATIVE: CASE EVENT DATE: 20210209
